FAERS Safety Report 10310801 (Version 2)
Quarter: 2014Q3

REPORT INFORMATION
  Report Type: Spontaneous
  Country: CA (occurrence: CA)
  Receive Date: 20140717
  Receipt Date: 20140717
  Transmission Date: 20150326
  Serious: Yes (Hospitalization)
  Sender: FDA-Public Use
  Company Number: CA-BAXTER-2014BAX035689

PATIENT
  Age: 72 Year
  Sex: Male

DRUGS (2)
  1. ACID CONCENTRATE D12265 [Suspect]
     Active Substance: ACETIC ACID\CALCIUM CHLORIDE\DEXTROSE\MAGNESIUM CHLORIDE\POTASSIUM CHLORIDE\SODIUM CHLORIDE
     Indication: RENAL FAILURE
     Route: 042
     Dates: start: 201309
  2. BICARBONATE CONCENTRATION D17000 [Suspect]
     Active Substance: SODIUM BICARBONATE
     Indication: RENAL FAILURE
     Route: 042
     Dates: start: 201309

REACTIONS (3)
  - Device related infection [Recovered/Resolved]
  - Infection [Recovered/Resolved]
  - Ear infection [Recovered/Resolved]
